FAERS Safety Report 21711695 (Version 1)
Quarter: 2022Q4

REPORT INFORMATION
  Report Type: Report from Study
  Country: CA (occurrence: CA)
  Receive Date: 20221212
  Receipt Date: 20221212
  Transmission Date: 20230112
  Serious: Yes (Hospitalization)
  Sender: FDA-Public Use
  Company Number: CA-ABBVIE-4232207

PATIENT
  Age: 67 Year
  Sex: Male

DRUGS (5)
  1. RISANKIZUMAB [Suspect]
     Active Substance: RISANKIZUMAB
     Indication: Product used for unknown indication
     Route: 058
     Dates: start: 20191117
  2. CALCIUM [Concomitant]
     Active Substance: CALCIUM
     Indication: Hip fracture
     Route: 048
     Dates: start: 20191223
  3. LUMIGAN [Concomitant]
     Active Substance: BIMATOPROST
     Indication: Cataract
     Route: 047
     Dates: start: 20200525
  4. ELIQUIS [Concomitant]
     Active Substance: APIXABAN
     Indication: Pulmonary thrombosis
     Route: 048
     Dates: start: 20220520
  5. MORPHINE HP [Concomitant]
     Indication: Hip fracture
     Dosage: TIME INTERVAL: AS NECESSARY
     Route: 048
     Dates: start: 20191220

REACTIONS (1)
  - Chronic obstructive pulmonary disease [Recovered/Resolved]

NARRATIVE: CASE EVENT DATE: 20221208
